FAERS Safety Report 17408338 (Version 9)
Quarter: 2022Q3

REPORT INFORMATION
  Report Type: Spontaneous
  Country: US (occurrence: US)
  Receive Date: 20200212
  Receipt Date: 20220708
  Transmission Date: 20221026
  Serious: Yes (Hospitalization, Other)
  Sender: FDA-Public Use
  Company Number: US-PFIZER INC-2020057485

PATIENT
  Age: 68 Year
  Sex: Male

DRUGS (2)
  1. XELJANZ XR [Suspect]
     Active Substance: TOFACITINIB CITRATE
     Indication: Rheumatoid arthritis
     Dosage: 11 MG, DAILY
     Route: 048
     Dates: start: 20191010
  2. XELJANZ XR [Suspect]
     Active Substance: TOFACITINIB CITRATE
     Dosage: 11 MG, DAILY
     Route: 048
     Dates: start: 2020

REACTIONS (15)
  - Urinary tract infection [Unknown]
  - Suicide attempt [Unknown]
  - Intentional self-injury [Unknown]
  - Cholecystitis [Unknown]
  - Condition aggravated [Recovering/Resolving]
  - Sexually inappropriate behaviour [Unknown]
  - Libido increased [Unknown]
  - Computerised tomogram thorax abnormal [Unknown]
  - Memory impairment [Unknown]
  - Product dose omission issue [Unknown]
  - Product administration error [Unknown]
  - Nodule [Not Recovered/Not Resolved]
  - Pain in extremity [Unknown]
  - Discouragement [Unknown]
  - Depression [Unknown]

NARRATIVE: CASE EVENT DATE: 20200201
